FAERS Safety Report 5456233-9 (Version None)
Quarter: 2007Q3

REPORT INFORMATION
  Report Type: 
  Country: None (occurrence: None)
  Receive Date: 20070918
  Receipt Date: 20070228
  Transmission Date: 20080115
  Serious: Yes (Hospitalization)
  Sender: FDA-Public Use
  Company Number: US-ASTRAZENECA-2006UW22927

PATIENT
  Age: 40 Year
  Sex: Female
  Weight: 121.8 kg

DRUGS (4)
  1. SEROQUEL [Suspect]
     Indication: DEPRESSION
     Route: 048
     Dates: start: 20010101, end: 20060101
  2. ABILIFY [Concomitant]
  3. RISPERDAL [Concomitant]
  4. XANAX [Concomitant]

REACTIONS (1)
  - DIABETES MELLITUS [None]
